FAERS Safety Report 11898917 (Version 1)
Quarter: 2016Q1

REPORT INFORMATION
  Report Type: Spontaneous
  Country: US (occurrence: US)
  Receive Date: 20160108
  Receipt Date: 20160108
  Transmission Date: 20160526
  Serious: No
  Sender: FDA-Public Use
  Company Number: US-APOTEX-2015AP008673

PATIENT

DRUGS (3)
  1. CALCITONIN SALMON. [Suspect]
     Active Substance: CALCITONIN SALMON
     Indication: COCCYDYNIA
     Dosage: 200IU DAILY; CONTINUED FOR 3-4WEEKS
     Route: 045
  2. TRAMADOL, PARACETAMOL [Concomitant]
     Active Substance: ACETAMINOPHEN\TRAMADOL
     Indication: COCCYDYNIA
     Dosage: 37.5/325MG
     Route: 065
  3. HYDROCODONE, PARACETAMOL [Concomitant]
     Indication: COCCYDYNIA
     Dosage: 7.5/500MG
     Route: 065

REACTIONS (3)
  - Drug ineffective [Unknown]
  - Epistaxis [Unknown]
  - Nasal discomfort [Unknown]
